FAERS Safety Report 9889716 (Version 1)
Quarter: 2014Q1

REPORT INFORMATION
  Report Type: Spontaneous
  Country: US (occurrence: US)
  Receive Date: 20140211
  Receipt Date: 20140211
  Transmission Date: 20141002
  Serious: Yes (Other)
  Sender: FDA-Public Use
  Company Number: US-PFIZER INC-2014037409

PATIENT
  Age: 33 Year
  Sex: Female
  Weight: 136.96 kg

DRUGS (3)
  1. GEODON [Suspect]
     Indication: HALLUCINATION, AUDITORY
     Dosage: 40 MG, 2X/DAY MORNING AND EVENING
     Dates: start: 201204
  2. GEODON [Suspect]
     Indication: HALLUCINATION
  3. SYNTHROID [Concomitant]
     Indication: THYROID DISORDER
     Dosage: UNK

REACTIONS (2)
  - Depression [Not Recovered/Not Resolved]
  - Off label use [Unknown]
